FAERS Safety Report 4794470-7 (Version None)
Quarter: 2005Q4

REPORT INFORMATION
  Report Type: 
  Country: None (occurrence: None)
  Receive Date: 20051011
  Receipt Date: 20050915
  Transmission Date: 20060501
  Serious: Yes (Death, Other)
  Sender: FDA-Public Use
  Company Number: BE-BRISTOL-MYERS SQUIBB COMPANY-13111786

PATIENT
  Age: 55 Year
  Sex: Male
  Weight: 69 kg

DRUGS (8)
  1. ATAZANAVIR [Suspect]
     Indication: HIV INFECTION
     Route: 048
     Dates: start: 20040321, end: 20050612
  2. RITONAVIR [Concomitant]
  3. TENOFOVIR [Concomitant]
  4. LAMIVUDINE [Concomitant]
  5. AZITHROMYCIN [Concomitant]
  6. ENOXAPARIN SODIUM [Concomitant]
  7. ACYCLOVIR [Concomitant]
  8. PAROMOMYCIN SULFATE [Concomitant]

REACTIONS (1)
  - B-CELL LYMPHOMA [None]
